FAERS Safety Report 6440186-0 (Version None)
Quarter: 2009Q4

REPORT INFORMATION
  Report Type: 
  Country: None (occurrence: None)
  Receive Date: 20091113
  Receipt Date: 20090727
  Transmission Date: 20100525
  Serious: No
  Sender: FDA-Public Use
  Company Number: A0798821A

PATIENT
  Sex: Female

DRUGS (9)
  1. CARVEDILOL [Suspect]
     Dosage: 12.5MG TWICE PER DAY
     Route: 048
     Dates: start: 20080101
  2. SYNTHROID [Concomitant]
  3. ZOLOFT [Concomitant]
  4. COUMADIN [Concomitant]
  5. LASIX [Concomitant]
  6. VITAMIN [Concomitant]
  7. PREDNISONE [Concomitant]
  8. SPIRONOLACTONE [Concomitant]
  9. LISINOPRIL [Concomitant]

REACTIONS (3)
  - DRUG INEFFECTIVE [None]
  - DYSPNOEA [None]
  - FATIGUE [None]
